FAERS Safety Report 8834670 (Version 2)
Quarter: 2012Q4

REPORT INFORMATION
  Report Type: Report from Study
  Country: JP (occurrence: JP)
  Receive Date: 20121010
  Receipt Date: 20121220
  Transmission Date: 20130627
  Serious: Yes (Other)
  Sender: FDA-Public Use
  Company Number: PHHY2012JP087351

PATIENT
  Age: 44 Year
  Sex: Male
  Weight: 65 kg

DRUGS (16)
  1. FTY 720 [Suspect]
     Indication: MULTIPLE SCLEROSIS
     Dosage: 0.5 mg, QD
     Route: 048
     Dates: start: 20120307, end: 20121001
  2. PREDONINE [Concomitant]
     Indication: MULTIPLE SCLEROSIS RELAPSE PROPHYLAXIS
     Dosage: 5 mg, UNK
     Route: 048
     Dates: start: 20110314
  3. TAKEPRON [Concomitant]
     Indication: GASTRIC ULCER
     Dosage: 15 mg, UNK
     Route: 048
     Dates: start: 20110301
  4. MEILAX [Concomitant]
     Indication: ANXIETY
     Dosage: 1 mg, UNK
     Dates: start: 20110406
  5. GLUCOBAY [Concomitant]
     Indication: DIABETES MELLITUS
     Dosage: 300 mg, UNK
     Route: 048
     Dates: start: 20110406
  6. TRYPTANOL [Concomitant]
     Indication: NEURALGIA
     Dosage: 10 mg, UNK
     Route: 048
     Dates: start: 20110406
  7. VOLTAREN [Concomitant]
     Indication: PSORIATIC ARTHROPATHY
     Dosage: 75 mg, UNK
     Route: 048
     Dates: start: 20110407
  8. VOLTAREN [Concomitant]
     Indication: RHEUMATOID ARTHRITIS
  9. RHEUMATREX [Concomitant]
     Indication: PSORIATIC ARTHROPATHY
     Dosage: UNK UKN, UNK
     Route: 048
     Dates: start: 20110411
  10. RHEUMATREX [Concomitant]
     Indication: RHEUMATOID ARTHRITIS
  11. FOLIAMIN [Concomitant]
     Indication: RHEUMATOID ARTHRITIS
     Dosage: 5 mg, UNK
     Dates: start: 20110411
  12. FOLIAMIN [Concomitant]
     Indication: PSORIATIC ARTHROPATHY
  13. ROHYPNOL [Concomitant]
     Indication: INSOMNIA
     Dosage: 1 mg, UNK
     Route: 048
     Dates: start: 20110317
  14. RESLIN [Concomitant]
     Indication: INSOMNIA
     Dosage: 50 mg, UNK
     Route: 048
     Dates: start: 20110323
  15. MUCOSTA [Concomitant]
     Indication: GASTRITIS
     Dosage: 200 mg, UNK
     Route: 048
     Dates: start: 20110301, end: 20110423
  16. ALLEGRA [Concomitant]
     Indication: PROPHYLAXIS
     Dosage: 180 mg, UNK
     Route: 048
     Dates: start: 20110307, end: 20110425

REACTIONS (6)
  - Liver disorder [Not Recovered/Not Resolved]
  - Gamma-glutamyltransferase increased [Not Recovered/Not Resolved]
  - Aspartate aminotransferase increased [Not Recovered/Not Resolved]
  - Alanine aminotransferase increased [Not Recovered/Not Resolved]
  - Lymphocyte count decreased [Not Recovered/Not Resolved]
  - Neutrophil count increased [Not Recovered/Not Resolved]
